FAERS Safety Report 19729376 (Version 1)
Quarter: 2021Q3

REPORT INFORMATION
  Report Type: Spontaneous
  Country: JP (occurrence: JP)
  Receive Date: 20210820
  Receipt Date: 20210820
  Transmission Date: 20211014
  Serious: Yes (Hospitalization)
  Sender: FDA-Public Use
  Company Number: JP-AZURITY PHARMACEUTICALS, INC.-2021AZY00081

PATIENT
  Age: 68 Year
  Sex: Female

DRUGS (2)
  1. METHOTREXATE. [Suspect]
     Active Substance: METHOTREXATE
     Indication: RHEUMATOID ARTHRITIS
     Dosage: 6 MG, 1X/WEEK
     Route: 065
  2. ACTARIT [Concomitant]
     Active Substance: ACTARIT
     Indication: RHEUMATOID ARTHRITIS
     Dosage: 100 MG, 1X/DAY
     Route: 065

REACTIONS (4)
  - Pneumocystis jirovecii pneumonia [Recovered/Resolved]
  - Pancytopenia [Recovered/Resolved]
  - Immune reconstitution inflammatory syndrome [Recovered/Resolved]
  - Cytomegalovirus colitis [Recovered/Resolved]
